FAERS Safety Report 4311705-5 (Version None)
Quarter: 2004Q1

REPORT INFORMATION
  Report Type: 
  Country: None (occurrence: None)
  Receive Date: 20040302
  Receipt Date: 20040121
  Transmission Date: 20041129
  Serious: No
  Sender: FDA-Public Use
  Company Number: 200411579BWH

PATIENT
  Age: 67 Year
  Sex: Male
  Weight: 74.8435 kg

DRUGS (3)
  1. LEVITRA [Suspect]
     Indication: ERECTILE DYSFUNCTION
     Dosage: 10 MG
     Route: 048
     Dates: start: 20040119
  2. MULTI-VITAMIN [Concomitant]
  3. VIAGRA [Concomitant]

REACTIONS (1)
  - HEADACHE [None]
